FAERS Safety Report 7343279-9 (Version None)
Quarter: 2011Q1

REPORT INFORMATION
  Report Type: 
  Country: None (occurrence: None)
  Receive Date: 20110301
  Receipt Date: 20110221
  Transmission Date: 20110831
  Serious: Yes (Life-Threatening, Hospitalization)
  Sender: FDA-Public Use
  Company Number: UKP11000018

PATIENT
  Age: 55 Year
  Sex: Male

DRUGS (5)
  1. ISOTRETINOIN [Suspect]
     Indication: PSORIASIS
     Dosage: 30 MG, ORAL
     Route: 048
  2. FELODIPINE [Concomitant]
  3. LANSOPRAZOLE [Concomitant]
  4. LISINOPRIL [Concomitant]
  5. ASACOL [Suspect]
     Indication: PSORIASIS
     Dosage: 800 MG, 3/DAY, ORAL
     Route: 048

REACTIONS (5)
  - PULMONARY EMBOLISM [None]
  - OFF LABEL USE [None]
  - CHEST PAIN [None]
  - EMBOLISM ARTERIAL [None]
  - PLEURITIC PAIN [None]
